FAERS Safety Report 12116153 (Version 1)
Quarter: 2016Q1

REPORT INFORMATION
  Report Type: Spontaneous
  Country: US (occurrence: US)
  Receive Date: 20160225
  Receipt Date: 20160225
  Transmission Date: 20160526
  Serious: No
  Sender: FDA-Public Use
  Company Number: US-ACTAVIS-2015-13405

PATIENT
  Age: 49 Year
  Sex: Male
  Weight: 94 kg

DRUGS (2)
  1. GABAPENTIN (AELLC) [Suspect]
     Active Substance: GABAPENTIN
     Indication: HYPOAESTHESIA
  2. GABAPENTIN (AELLC) [Suspect]
     Active Substance: GABAPENTIN
     Indication: PAIN IN EXTREMITY
     Dosage: 300 MG, TWO OR THREE TIMES A DAY
     Route: 065
     Dates: start: 201412

REACTIONS (1)
  - Erectile dysfunction [Not Recovered/Not Resolved]
